FAERS Safety Report 5904035-9 (Version None)
Quarter: 2008Q3

REPORT INFORMATION
  Report Type: 
  Country: None (occurrence: None)
  Receive Date: 20080919
  Receipt Date: 20080725
  Transmission Date: 20090109
  Serious: No
  Sender: FDA-Public Use
  Company Number: US-WYE-H0583308

PATIENT
  Age: 37 Year
  Sex: Female
  Weight: 72.64 kg

DRUGS (2)
  1. PRISTIQ [Suspect]
     Dosage: 50 MG 1X PER 1 DAY ORAL
     Route: 048
  2. ALCOHOL (ETHANOL) [Concomitant]

REACTIONS (1)
  - DYSGEUSIA [None]
